FAERS Safety Report 5341956-2 (Version None)
Quarter: 2007Q2

REPORT INFORMATION
  Report Type: 
  Country: None (occurrence: None)
  Receive Date: 20070406
  Receipt Date: 20060127
  Transmission Date: 20071010
  Serious: Yes (Disabling)
  Sender: FDA-Public Use
  Company Number: 2006010045

PATIENT
  Sex: Male

DRUGS (7)
  1. DORAL [Suspect]
     Indication: INSOMNIA
     Dosage: 15 MG, 1 IN 1 D, ORAL
     Route: 048
     Dates: start: 20051013
  2. TRIAZOLAM [Suspect]
     Indication: INSOMNIA
     Dosage: 0.25 MG, 1 IN 1 D
     Dates: start: 20050706, end: 20051017
  3. AZULENE (AZULENE) [Concomitant]
  4. ASPIRIN [Concomitant]
  5. POLYCARBOPHIL (POLYCARBOPHIL) [Concomitant]
  6. MECOBALAMIN (MECOBALAMIN) [Concomitant]
  7. LANSOPRAZOLE [Concomitant]

REACTIONS (3)
  - ASTHENIA [None]
  - SOMNOLENCE [None]
  - SPEECH DISORDER [None]
